FAERS Safety Report 8337697-X (Version None)
Quarter: 2012Q2

REPORT INFORMATION
  Report Type: 
  Country: None (occurrence: None)
  Receive Date: 20120504
  Receipt Date: 20120424
  Transmission Date: 20120825
  Serious: Yes (Other)
  Sender: FDA-Public Use
  Company Number: SA-JNJFOC-20120413152

PATIENT
  Age: 4 Year

DRUGS (1)
  1. TOPAMAX [Suspect]
     Indication: EPILEPSY
     Route: 048
     Dates: start: 20091001

REACTIONS (2)
  - URINARY SEDIMENT PRESENT [None]
  - OFF LABEL USE [None]
